FAERS Safety Report 4426362-7 (Version None)
Quarter: 2004Q3

REPORT INFORMATION
  Report Type: 
  Country: None (occurrence: None)
  Receive Date: 20040811
  Receipt Date: 20040721
  Transmission Date: 20050211
  Serious: Yes (Hospitalization)
  Sender: FDA-Public Use
  Company Number: F01200402134

PATIENT
  Sex: 0

DRUGS (3)
  1. (OXALIPLATIN) - SOLUTION - UNIT DOSE : UNKNOWN [Suspect]
     Dosage: INTRAVENOUS NOS
     Route: 042
  2. XELODA [Suspect]
  3. (CPT-111) - FORM : UNKNOWN - UNIT DOSE : UNKNOWN [Suspect]

REACTIONS (3)
  - INTESTINAL PERFORATION [None]
  - NEUTROPENIA [None]
  - PYREXIA [None]
